FAERS Safety Report 8522124-X (Version None)
Quarter: 2012Q3

REPORT INFORMATION
  Report Type: 
  Country: None (occurrence: None)
  Receive Date: 20120709
  Receipt Date: 20120619
  Transmission Date: 20120928
  Serious: Yes (Other)
  Sender: FDA-Public Use
  Company Number: FK201201757

PATIENT
  Age: 5 Year
  Sex: Male

DRUGS (1)
  1. BLEOMYCIN SULFATE [Suspect]
     Indication: ILL-DEFINED DISORDER
     Dosage: 3 MG, FOR 14 WEEKS, INTRALESIONAL
     Route: 029

REACTIONS (10)
  - CEREBRAL INFARCTION [None]
  - CEREBRAL ARTERY STENOSIS [None]
  - CEREBROVASCULAR DISORDER [None]
  - INFARCTION [None]
  - TOXICITY TO VARIOUS AGENTS [None]
  - BLINDNESS UNILATERAL [None]
  - HYPOPITUITARISM [None]
  - METASTASIS [None]
  - HEMIPARESIS [None]
  - BRAIN NEOPLASM [None]
